FAERS Safety Report 7984033-4 (Version None)
Quarter: 2011Q4

REPORT INFORMATION
  Report Type: 
  Country: None (occurrence: None)
  Receive Date: 20111216
  Receipt Date: 20111212
  Transmission Date: 20120403
  Serious: Yes (Hospitalization, Other)
  Sender: FDA-Public Use
  Company Number: BR-PFIZER INC-2009237075

PATIENT
  Age: 84 Year
  Sex: Male

DRUGS (7)
  1. LASIX [Concomitant]
     Dosage: UNK
  2. FOLIC ACID [Concomitant]
     Dosage: UNK
  3. CITONEURON [Concomitant]
     Dosage: UNK
  4. ACETYLSALICYLIC ACID [Concomitant]
     Dosage: UNK
  5. ERYTHROPOIETIN [Concomitant]
     Dosage: UNK
  6. CYANOCOBALAMIN/PYRIDOXINE HYDROCHLORIDE/THIAMINE NITRATE [Concomitant]
     Dosage: UNK
  7. LIPITOR [Suspect]
     Indication: BLOOD CHOLESTEROL INCREASED
     Dosage: UNK
     Route: 048

REACTIONS (6)
  - BLOOD PRESSURE INCREASED [None]
  - MYALGIA [None]
  - BLOOD URIC ACID INCREASED [None]
  - MUSCLE SPASMS [None]
  - CARDIOVASCULAR DISORDER [None]
  - CAROTID ARTERY OCCLUSION [None]
